FAERS Safety Report 9117937 (Version 1)
Quarter: 2013Q1

REPORT INFORMATION
  Report Type: Spontaneous
  Country: GR (occurrence: GR)
  Receive Date: 20130208
  Receipt Date: 20130208
  Transmission Date: 20140127
  Serious: Yes (Other)
  Sender: FDA-Public Use
  Company Number: GR-ASTRAZENECA-2013SE07981

PATIENT
  Sex: 0

DRUGS (1)
  1. LIDOCAINE [Suspect]
     Indication: DRUG TOLERANCE

REACTIONS (1)
  - Anaphylactic reaction [Unknown]
